FAERS Safety Report 15361274 (Version 4)
Quarter: 2020Q1

REPORT INFORMATION
  Report Type: Report from Study
  Country: None (occurrence: CO)
  Receive Date: 20180907
  Receipt Date: 20200211
  Transmission Date: 20200409
  Serious: Yes (Hospitalization, Other)
  Sender: FDA-Public Use
  Company Number: CO-ABBVIE-18K-036-2388946-00

PATIENT
  Age: 67 Year
  Sex: Female
  Weight: 65 kg

DRUGS (1)
  1. HUMIRA [Suspect]
     Active Substance: ADALIMUMAB
     Indication: RHEUMATOID ARTHRITIS
     Route: 058
     Dates: start: 20120516, end: 20180427

REACTIONS (9)
  - Foot operation [Unknown]
  - Pain [Unknown]
  - Mobility decreased [Recovering/Resolving]
  - Bone erosion [Not Recovered/Not Resolved]
  - Limb mass [Unknown]
  - Arthralgia [Recovering/Resolving]
  - Foot deformity [Not Recovered/Not Resolved]
  - Musculoskeletal pain [Recovering/Resolving]
  - Localised infection [Recovering/Resolving]

NARRATIVE: CASE EVENT DATE: 2013
